FAERS Safety Report 9065258 (Version 1)
Quarter: 2013Q1

REPORT INFORMATION
  Report Type: Report from Study
  Country: US (occurrence: US)
  Receive Date: 20130130
  Receipt Date: 20130130
  Transmission Date: 20140127
  Serious: No
  Sender: FDA-Public Use
  Company Number: US-ABBOTT-12P-163-0968896-00

PATIENT
  Age: 45 Year
  Sex: Female

DRUGS (6)
  1. HUMIRA 40 MG/0.8 ML PEN [Suspect]
     Indication: ANKYLOSING SPONDYLITIS
     Dates: start: 200611
  2. HUMIRA 40 MG/0.8 ML PEN [Suspect]
     Dates: start: 2010
  3. CLARITIN-D [Concomitant]
     Indication: HYPERSENSITIVITY
     Dates: start: 2006
  4. FLUTICASONE [Concomitant]
     Indication: HYPERSENSITIVITY
     Route: 045
     Dates: start: 2006
  5. TRAMADOL HCL [Concomitant]
     Indication: PAIN
     Dates: start: 2006
  6. NABUMETONE [Concomitant]
     Indication: PAIN
     Dates: start: 2006

REACTIONS (9)
  - Fatigue [Not Recovered/Not Resolved]
  - Abdominal pain upper [Not Recovered/Not Resolved]
  - Abdominal distension [Not Recovered/Not Resolved]
  - Diarrhoea [Not Recovered/Not Resolved]
  - Malaise [Not Recovered/Not Resolved]
  - Nausea [Not Recovered/Not Resolved]
  - Pyrexia [Not Recovered/Not Resolved]
  - Rheumatoid arthritis [Not Recovered/Not Resolved]
  - Ankylosing spondylitis [Not Recovered/Not Resolved]
